FAERS Safety Report 7282731-1 (Version None)
Quarter: 2011Q1

REPORT INFORMATION
  Report Type: 
  Country: None (occurrence: None)
  Receive Date: 20110125
  Receipt Date: 20110112
  Transmission Date: 20110831
  Serious: Yes (Other)
  Sender: FDA-Public Use
  Company Number: 013912

PATIENT
  Age: 23 Year
  Sex: Male

DRUGS (3)
  1. ALPRAZOLAM [Suspect]
     Indication: SLEEP DISORDER
     Dosage: UP TO 42 TABLET ORAL
     Route: 048
  2. RISPERDONE [Suspect]
     Indication: SLEEP DISORDER
     Dosage: 4-6 TABLETS
  3. LORTAB [Suspect]
     Indication: SLEEP DISORDER
     Dosage: 5-6 TABLETS

REACTIONS (5)
  - INCORRECT DOSE ADMINISTERED [None]
  - ATRIOVENTRICULAR BLOCK SECOND DEGREE [None]
  - ELECTROCARDIOGRAM QT PROLONGED [None]
  - SELF-MEDICATION [None]
  - REFUSAL OF TREATMENT BY PATIENT [None]
